FAERS Safety Report 13893754 (Version 2)
Quarter: 2017Q3

REPORT INFORMATION
  Report Type: Spontaneous
  Country: BR (occurrence: BR)
  Receive Date: 20170822
  Receipt Date: 20170824
  Transmission Date: 20171127
  Serious: Yes (Death, Hospitalization)
  Sender: FDA-Public Use
  Company Number: PHHY2017BR120957

PATIENT
  Age: 61 Year
  Sex: Male
  Weight: 65 kg

DRUGS (6)
  1. PANTOPRAZOLE [Concomitant]
     Active Substance: PANTOPRAZOLE
     Indication: GASTRIC DISORDER
     Dosage: 1 TABLET, QD
     Route: 048
  2. DIGESAN [Concomitant]
     Active Substance: BROMOPRIDE
     Indication: VOMITING
     Dosage: 1 DF, Q8H
     Route: 048
  3. ENALAPRIL [Concomitant]
     Active Substance: ENALAPRIL
     Indication: HYPERTENSION
     Dosage: 1 TABLET, Q12H
     Route: 048
  4. CARVEDILOL. [Concomitant]
     Active Substance: CARVEDILOL
     Indication: HYPERTENSION
     Dosage: 1 TABLET Q12H
     Route: 048
  5. GEMCIT [Suspect]
     Active Substance: GEMCITABINE HYDROCHLORIDE
     Indication: PANCREATIC CARCINOMA
     Dosage: 1738 MG, UNK
     Route: 042
     Dates: start: 20170614, end: 20170614
  6. SERTRALINE [Concomitant]
     Active Substance: SERTRALINE HYDROCHLORIDE
     Indication: DEPRESSION
     Dosage: 1 TABLET, QD
     Route: 048

REACTIONS (9)
  - Febrile neutropenia [Fatal]
  - Hypotension [Unknown]
  - Electrolyte imbalance [Unknown]
  - Metastases to liver [Unknown]
  - Diarrhoea [Fatal]
  - Pancreatic carcinoma [Unknown]
  - Dehydration [Unknown]
  - Biliary adenoma [Unknown]
  - Drug resistance [Unknown]

NARRATIVE: CASE EVENT DATE: 20170622
